FAERS Safety Report 9304092 (Version 1)
Quarter: 2012Q4

REPORT INFORMATION
  Report Type: Spontaneous
  Country: US (occurrence: None)
  Receive Date: 20121210
  Receipt Date: 20121210
  Transmission Date: 20130627
  Serious: Yes (Other)
  Sender: FDA-Public Use
  Company Number: 2012P1066154

PATIENT
  Age: 14 Year
  Sex: Female
  Weight: 52.62 kg

DRUGS (2)
  1. MYORISAN 40 MG (NO PREF. NAME) [Suspect]
     Indication: ACNE
     Dates: start: 20121020, end: 20121119
  2. ORTH TRI- CYCLEN [Concomitant]

REACTIONS (1)
  - Depression [None]
